FAERS Safety Report 12611657 (Version 1)
Quarter: 2016Q3

REPORT INFORMATION
  Report Type: Spontaneous
  Country: US (occurrence: US)
  Receive Date: 20160801
  Receipt Date: 20160801
  Transmission Date: 20161109
  Serious: Yes (Other)
  Sender: FDA-Public Use
  Company Number: US-NOVOPROD-502908

PATIENT
  Age: 84 Year
  Sex: Male
  Weight: 56.69 kg

DRUGS (2)
  1. LANTUS [Concomitant]
     Active Substance: INSULIN GLARGINE
     Indication: TYPE 2 DIABETES MELLITUS
     Dosage: 12 U, QD
  2. NOVOLOG [Suspect]
     Active Substance: INSULIN ASPART
     Indication: TYPE 2 DIABETES MELLITUS
     Dosage: 4 U, TID
     Route: 058
     Dates: start: 2015

REACTIONS (3)
  - Weight decreased [Not Recovered/Not Resolved]
  - Polycythaemia [Unknown]
  - Bone lesion [Unknown]

NARRATIVE: CASE EVENT DATE: 20150922
